FAERS Safety Report 10358623 (Version 2)
Quarter: 2014Q3

REPORT INFORMATION
  Report Type: Report from Study
  Country: US (occurrence: US)
  Receive Date: 20140803
  Receipt Date: 20140827
  Transmission Date: 20150326
  Serious: Yes (Hospitalization)
  Sender: FDA-Public Use
  Company Number: US-ACTELION-A-US2014-102816

PATIENT
  Age: 20 Year
  Sex: Female

DRUGS (4)
  1. SILDENAFIL [Concomitant]
     Active Substance: SILDENAFIL
     Indication: PULMONARY ARTERIAL HYPERTENSION
  2. COUMADIN [Concomitant]
     Active Substance: WARFARIN SODIUM
  3. ASPIRIN. [Concomitant]
     Active Substance: ASPIRIN
  4. TRACLEER [Suspect]
     Active Substance: BOSENTAN\BOSENTAN MONOHYDRATE
     Indication: PULMONARY ARTERIAL HYPERTENSION
     Dosage: UNK
     Route: 048

REACTIONS (2)
  - Haemarthrosis [Recovering/Resolving]
  - Arthralgia [Recovering/Resolving]
